FAERS Safety Report 11868082 (Version 2)
Quarter: 2016Q1

REPORT INFORMATION
  Report Type: Report from Study
  Country: JP (occurrence: JP)
  Receive Date: 20151224
  Receipt Date: 20160204
  Transmission Date: 20160526
  Serious: Yes (Other)
  Sender: FDA-Public Use
  Company Number: JP-009507513-1511JPN015210

PATIENT
  Age: 74 Year
  Sex: Male

DRUGS (28)
  1. PLATOSIN [Suspect]
     Active Substance: CISPLATIN
     Dosage: 3 MG, QD
     Route: 042
     Dates: start: 20140127, end: 20140128
  2. FLUOROURACIL. [Suspect]
     Active Substance: FLUOROURACIL
     Dosage: 250 MG, QD
     Route: 042
     Dates: start: 20140114, end: 20140117
  3. ALOXI [Concomitant]
     Active Substance: PALONOSETRON HYDROCHLORIDE
     Dosage: UNK
     Dates: start: 20140127, end: 20140127
  4. ALOXI [Concomitant]
     Active Substance: PALONOSETRON HYDROCHLORIDE
     Dosage: UNK
     Dates: start: 20140310, end: 20140310
  5. FOSAPREPITANT DIMEGLUMINE [Suspect]
     Active Substance: FOSAPREPITANT DIMEGLUMINE
     Dosage: 150 MG, QD (4TH COURSE)
     Route: 041
     Dates: start: 20140310, end: 20140310
  6. FOSAPREPITANT DIMEGLUMINE [Suspect]
     Active Substance: FOSAPREPITANT DIMEGLUMINE
     Dosage: 150 MG, QD (6TH COURSE)
     Route: 041
     Dates: start: 20140414, end: 20140414
  7. PLATOSIN [Suspect]
     Active Substance: CISPLATIN
     Dosage: 2.4 MG, QD
     Route: 042
     Dates: start: 20140325, end: 20140328
  8. FLUOROURACIL. [Suspect]
     Active Substance: FLUOROURACIL
     Dosage: 250 MG, QD
     Route: 042
     Dates: start: 20140127, end: 20140128
  9. FOSAPREPITANT DIMEGLUMINE [Suspect]
     Active Substance: FOSAPREPITANT DIMEGLUMINE
     Dosage: 150 MG, QD (7TH COURSE)
     Route: 041
     Dates: start: 20140428, end: 20140428
  10. GEMZAR [Suspect]
     Active Substance: GEMCITABINE HYDROCHLORIDE
     Dosage: 1000 MG, QD
     Route: 042
     Dates: start: 20140114, end: 20140114
  11. GEMZAR [Suspect]
     Active Substance: GEMCITABINE HYDROCHLORIDE
     Dosage: 800 MG, QD
     Route: 042
     Dates: start: 20140310, end: 20140310
  12. ALOXI [Concomitant]
     Active Substance: PALONOSETRON HYDROCHLORIDE
     Dosage: UNK
     Dates: start: 20140325, end: 20140325
  13. FOSAPREPITANT DIMEGLUMINE [Suspect]
     Active Substance: FOSAPREPITANT DIMEGLUMINE
     Dosage: 150 MG, QD (8TH COURSE)
     Route: 041
     Dates: start: 20140526, end: 20140526
  14. GEMZAR [Suspect]
     Active Substance: GEMCITABINE HYDROCHLORIDE
     Dosage: 800 MG, QD
     Route: 042
     Dates: start: 20140325, end: 20140325
  15. PLATOSIN [Suspect]
     Active Substance: CISPLATIN
     Indication: SMALL INTESTINE CARCINOMA
     Dosage: 3 MG, QD
     Route: 042
     Dates: start: 20131217, end: 20131219
  16. GEMZAR [Suspect]
     Active Substance: GEMCITABINE HYDROCHLORIDE
     Dosage: 1000 MG, QD
     Route: 042
     Dates: start: 20140127, end: 20140127
  17. FLUOROURACIL. [Suspect]
     Active Substance: FLUOROURACIL
     Dosage: 200 MG, QD
     Route: 042
     Dates: start: 20140310, end: 20140313
  18. FLUOROURACIL. [Suspect]
     Active Substance: FLUOROURACIL
     Dosage: 200 MG, QD
     Route: 042
     Dates: start: 20140325, end: 20140328
  19. ALOXI [Concomitant]
     Active Substance: PALONOSETRON HYDROCHLORIDE
     Dosage: UNK
     Dates: start: 20131217, end: 20131217
  20. PLATOSIN [Suspect]
     Active Substance: CISPLATIN
     Dosage: 2.4 MG, QD
     Route: 042
     Dates: start: 20140310, end: 20140313
  21. FOSAPREPITANT DIMEGLUMINE [Suspect]
     Active Substance: FOSAPREPITANT DIMEGLUMINE
     Dosage: 150 MG, QD (5TH COURSE)
     Route: 041
     Dates: start: 20140325, end: 20140325
  22. FOSAPREPITANT DIMEGLUMINE [Suspect]
     Active Substance: FOSAPREPITANT DIMEGLUMINE
     Indication: PROPHYLAXIS OF NAUSEA AND VOMITING
     Dosage: 150 MG, QD (1ST COURSE)
     Route: 041
     Dates: start: 20131217, end: 20131217
  23. FOSAPREPITANT DIMEGLUMINE [Suspect]
     Active Substance: FOSAPREPITANT DIMEGLUMINE
     Dosage: 150 MG, QD (2ND COURSE)
     Route: 041
     Dates: start: 20140114, end: 20140114
  24. FOSAPREPITANT DIMEGLUMINE [Suspect]
     Active Substance: FOSAPREPITANT DIMEGLUMINE
     Dosage: 150 MG, QD (3TH COURSE)
     Route: 041
     Dates: start: 20140127, end: 20140127
  25. GEMZAR [Suspect]
     Active Substance: GEMCITABINE HYDROCHLORIDE
     Indication: SMALL INTESTINE CARCINOMA
     Dosage: 1000 MG, QD
     Route: 042
     Dates: start: 20131217, end: 20131217
  26. PLATOSIN [Suspect]
     Active Substance: CISPLATIN
     Dosage: 3 MG, QD
     Route: 042
     Dates: start: 20140114, end: 20140117
  27. FLUOROURACIL. [Suspect]
     Active Substance: FLUOROURACIL
     Indication: SMALL INTESTINE CARCINOMA
     Dosage: 250 MG, QD
     Route: 042
     Dates: start: 20131217, end: 20131219
  28. ALOXI [Concomitant]
     Active Substance: PALONOSETRON HYDROCHLORIDE
     Dosage: UNK
     Dates: start: 20140114, end: 20140114

REACTIONS (2)
  - Ileus [Recovered/Resolved]
  - White blood cell count decreased [Unknown]

NARRATIVE: CASE EVENT DATE: 20140218
